FAERS Safety Report 8472281-9 (Version None)
Quarter: 2012Q2

REPORT INFORMATION
  Report Type: 
  Country: None (occurrence: None)
  Receive Date: 20120323
  Receipt Date: 20110822
  Transmission Date: 20120825
  Serious: Yes (Hospitalization)
  Sender: FDA-Public Use
  Company Number: 163-21880-11082697

PATIENT
  Age: 59 Year
  Sex: Female
  Weight: 108.8633 kg

DRUGS (9)
  1. CALCIUM (CALICUM) [Concomitant]
  2. GLYBURIDE [Concomitant]
  3. PANTOPRAZOLE [Concomitant]
  4. FUROSEMIDE [Concomitant]
  5. ACYCLOVIR [Concomitant]
  6. ALLOPURINOL [Concomitant]
  7. LEVOTHYROXINE SODIUM [Concomitant]
  8. REVLIMID [Suspect]
     Indication: CHRONIC LYMPHOCYTIC LEUKAEMIA
     Dosage: 5 MG, 1 I N1 D, PO
     Route: 048
     Dates: start: 20110719
  9. REVLIMID [Suspect]
     Indication: CHRONIC LYMPHOCYTIC LEUKAEMIA
     Dosage: 5 MG, 1 I N1 D, PO
     Route: 048
     Dates: start: 20110601

REACTIONS (5)
  - PYREXIA [None]
  - VOMITING [None]
  - NASOPHARYNGITIS [None]
  - CONSTIPATION [None]
  - FUNGAL INFECTION [None]
